FAERS Safety Report 15392277 (Version 1)
Quarter: 2018Q3

REPORT INFORMATION
  Report Type: Spontaneous
  Country: US (occurrence: US)
  Receive Date: 20180917
  Receipt Date: 20180917
  Transmission Date: 20181010
  Serious: Yes (Hospitalization)
  Sender: FDA-Public Use
  Company Number: US-TARO-2018TAR00648

PATIENT
  Age: 46 Year
  Sex: Male
  Weight: 87.08 kg

DRUGS (2)
  1. CARBAMAZEPINE TABLETS USP 200 MG [Suspect]
     Active Substance: CARBAMAZEPINE
     Indication: EPILEPSY
  2. CARBAMAZEPINE TABLETS USP 200 MG [Suspect]
     Active Substance: CARBAMAZEPINE
     Indication: ANGER
     Dosage: 200 MG, 2X/DAY
     Route: 048
     Dates: start: 1994

REACTIONS (8)
  - Off label use [Not Recovered/Not Resolved]
  - Wound [Unknown]
  - Dry mouth [Not Recovered/Not Resolved]
  - Dizziness [Recovered/Resolved]
  - Amnesia [Unknown]
  - Seizure [Recovered/Resolved]
  - Fall [Recovered/Resolved]
  - Headache [Recovered/Resolved]

NARRATIVE: CASE EVENT DATE: 1994
